FAERS Safety Report 5816884-6 (Version None)
Quarter: 2008Q3

REPORT INFORMATION
  Report Type: 
  Country: None (occurrence: None)
  Receive Date: 20080721
  Receipt Date: 20080711
  Transmission Date: 20090109
  Serious: Yes (Hospitalization)
  Sender: FDA-Public Use
  Company Number: FR-ABBOTT-08P-056-0462252-00

PATIENT
  Sex: Male

DRUGS (3)
  1. DEPAKENE [Suspect]
     Indication: PETIT MAL EPILEPSY
     Route: 048
     Dates: start: 20071201
  2. CLOBAZAM [Suspect]
     Indication: PETIT MAL EPILEPSY
     Route: 048
     Dates: start: 20071201
  3. RISPERIDONE [Suspect]
     Indication: DEPRESSION
     Route: 048
     Dates: start: 20071201, end: 20080410

REACTIONS (5)
  - ABNORMAL BEHAVIOUR [None]
  - DEPRESSED MOOD [None]
  - ECHOLALIA [None]
  - PSYCHOMOTOR RETARDATION [None]
  - THROMBOCYTOPENIA [None]
